FAERS Safety Report 15531964 (Version 1)
Quarter: 2018Q4

REPORT INFORMATION
  Report Type: Other
  Country: SI (occurrence: SI)
  Receive Date: 20181019
  Receipt Date: 20181019
  Transmission Date: 20190205
  Serious: Yes (Other)
  Sender: FDA-Public Use
  Company Number: SI-ACTELION-A-CH2018-180403

PATIENT
  Age: 13 Year
  Sex: Male

DRUGS (2)
  1. MIGLUSTAT. [Suspect]
     Active Substance: MIGLUSTAT
     Indication: NIEMANN-PICK DISEASE
     Route: 048
  2. FLUOXETINE [Concomitant]
     Active Substance: FLUOXETINE HYDROCHLORIDE

REACTIONS (8)
  - Dystonia [Unknown]
  - Posturing [Unknown]
  - Hypotonia [Unknown]
  - Automatism [Unknown]
  - Cataplexy [Unknown]
  - Sleep disorder [Unknown]
  - Dyskinesia [Unknown]
  - Hypertonia [Unknown]
